FAERS Safety Report 10654640 (Version 2)
Quarter: 2014Q4

REPORT INFORMATION
  Report Type: Spontaneous
  Country: JP (occurrence: JP)
  Receive Date: 20141216
  Receipt Date: 20141216
  Transmission Date: 20150529
  Serious: Yes (Death)
  Sender: FDA-Public Use
  Company Number: JP-MALLINCKRODT-T201403637

PATIENT
  Age: 74 Year
  Sex: Female
  Weight: 57 kg

DRUGS (4)
  1. OXINORM [Concomitant]
     Active Substance: OXYCODONE HYDROCHLORIDE
     Dosage: 5-10 MG, PRN
     Route: 048
     Dates: start: 20140812
  2. METHADONE [Suspect]
     Active Substance: METHADONE HYDROCHLORIDE
     Indication: CANCER PAIN
     Dosage: 5 MG (15 MG DAILY DOSE)
     Route: 048
     Dates: start: 20140812, end: 20140905
  3. METHADONE [Suspect]
     Active Substance: METHADONE HYDROCHLORIDE
     Dosage: 5 MG (10 MG DAILY DOSE)
     Route: 048
     Dates: start: 20140906, end: 20140907
  4. NOVAMIN [Concomitant]
     Active Substance: PROCHLORPERAZINE MALEATE
     Dosage: 15 MG
     Route: 048
     Dates: end: 20140907

REACTIONS (4)
  - Dermal cyst [Recovering/Resolving]
  - Vomiting [Not Recovered/Not Resolved]
  - Nausea [Not Recovered/Not Resolved]
  - Neuroendocrine tumour [Fatal]

NARRATIVE: CASE EVENT DATE: 20140819
